FAERS Safety Report 9046061 (Version 3)
Quarter: 2013Q3

REPORT INFORMATION
  Report Type: Spontaneous
  Country: US (occurrence: US)
  Receive Date: 20130201
  Receipt Date: 20130812
  Transmission Date: 20140515
  Serious: No
  Sender: FDA-Public Use
  Company Number: US-BIOGENIDEC-2013BI008044

PATIENT
  Sex: Female

DRUGS (3)
  1. TYSABRI [Suspect]
     Indication: MULTIPLE SCLEROSIS
     Route: 042
     Dates: start: 20090303, end: 20100917
  2. TYSABRI [Suspect]
     Indication: MULTIPLE SCLEROSIS
     Route: 042
     Dates: end: 20101102
  3. TYSABRI [Suspect]
     Indication: MULTIPLE SCLEROSIS
     Route: 042
     Dates: start: 20120213, end: 20130424

REACTIONS (21)
  - Pollakiuria [Not Recovered/Not Resolved]
  - Cataract [Not Recovered/Not Resolved]
  - Blindness [Not Recovered/Not Resolved]
  - Hypertonic bladder [Recovered/Resolved]
  - Glucose tolerance impaired [Recovered/Resolved]
  - Vitamin D deficiency [Unknown]
  - Balance disorder [Recovered/Resolved]
  - Hearing impaired [Recovered/Resolved]
  - Decreased immune responsiveness [Unknown]
  - Mental impairment [Recovered/Resolved]
  - Depression [Recovered/Resolved]
  - Vision blurred [Recovered/Resolved]
  - Diarrhoea [Recovered/Resolved]
  - Abdominal pain upper [Recovered/Resolved]
  - Colitis [Unknown]
  - General symptom [Recovered/Resolved]
  - Photosensitivity reaction [Unknown]
  - Vein disorder [Recovered/Resolved]
  - Headache [Recovered/Resolved]
  - Multiple sclerosis relapse [Not Recovered/Not Resolved]
  - Sinusitis [Recovered/Resolved]
